FAERS Safety Report 24762679 (Version 1)
Quarter: 2024Q4

REPORT INFORMATION
  Report Type: Spontaneous
  Country: CA (occurrence: CA)
  Receive Date: 20241221
  Receipt Date: 20241221
  Transmission Date: 20250114
  Serious: Yes (Hospitalization, Other)
  Sender: SAMSUNG BIOEPIS
  Company Number: CA-SAMSUNG BIOEPIS-SB-2024-37946

PATIENT
  Age: 17 Year
  Sex: Female
  Weight: 70 kg

DRUGS (3)
  1. INFLIXIMAB [Suspect]
     Active Substance: INFLIXIMAB
     Indication: Colitis ulcerative
     Dosage: 3 DOSES AT 2-WEEK INTERVALS;
  2. INFLIXIMAB [Suspect]
     Active Substance: INFLIXIMAB
  3. RIFAMPIN [Suspect]
     Active Substance: RIFAMPIN
     Indication: Disseminated tuberculosis

REACTIONS (10)
  - Haemophagocytic lymphohistiocytosis [Unknown]
  - Immune reconstitution inflammatory syndrome [Unknown]
  - Vomiting [Recovered/Resolved]
  - Strongyloidiasis [Unknown]
  - Disseminated tuberculosis [Recovered/Resolved]
  - Pancytopenia [Unknown]
  - Nausea [Unknown]
  - Splenomegaly [Unknown]
  - Paraesthesia [Recovered/Resolved]
  - Off label use [Unknown]
